FAERS Safety Report 7798777-0 (Version None)
Quarter: 2011Q4

REPORT INFORMATION
  Report Type: 
  Country: None (occurrence: None)
  Receive Date: 20111006
  Receipt Date: 20110927
  Transmission Date: 20120403
  Serious: Yes (Hospitalization)
  Sender: FDA-Public Use
  Company Number: PHHY2011US86223

PATIENT
  Age: 46 Year
  Sex: Male

DRUGS (2)
  1. HEPARIN [Suspect]
     Indication: THROMBOSIS PROPHYLAXIS
     Dosage: UNK
     Route: 058
  2. HEPARIN [Suspect]
     Dosage: 5000 U, BID
     Route: 058

REACTIONS (4)
  - DYSPNOEA [None]
  - JUGULAR VEIN THROMBOSIS [None]
  - LIVER DISORDER [None]
  - HEPARIN-INDUCED THROMBOCYTOPENIA [None]
